FAERS Safety Report 10039392 (Version 1)
Quarter: 2014Q1

REPORT INFORMATION
  Report Type: Spontaneous
  Country: US (occurrence: None)
  Receive Date: 20140318
  Receipt Date: 20140318
  Transmission Date: 20141002
  Serious: Yes (Other)
  Sender: FDA-Public Use
  Company Number: 2014CT000016

PATIENT
  Age: 60 Year
  Sex: Female
  Weight: 66.23 kg

DRUGS (3)
  1. KORLYM [Suspect]
     Indication: OVARIAN CANCER
     Dates: start: 2014
  2. ZOLPIDEM /00914902/ [Concomitant]
  3. COLACE [Concomitant]

REACTIONS (5)
  - Flatulence [None]
  - Abdominal distension [None]
  - Fatigue [None]
  - Pain in extremity [None]
  - Back pain [None]
